FAERS Safety Report 17170174 (Version 2)
Quarter: 2020Q1

REPORT INFORMATION
  Report Type: Spontaneous
  Country: US (occurrence: US)
  Receive Date: 20191218
  Receipt Date: 20200117
  Transmission Date: 20200409
  Serious: No
  Sender: FDA-Public Use
  Company Number: US-JNJFOC-20191221472

PATIENT
  Age: 54 Year
  Sex: Female
  Weight: 145 kg

DRUGS (1)
  1. SPRAVATO [Suspect]
     Active Substance: ESKETAMINE
     Indication: DEPRESSION
     Dates: start: 20191210, end: 20191210

REACTIONS (4)
  - Hypoaesthesia [Recovered/Resolved]
  - Anxiety [Unknown]
  - Agitation [Recovered/Resolved]
  - Blood pressure increased [Unknown]

NARRATIVE: CASE EVENT DATE: 20191210
